FAERS Safety Report 8120126-9 (Version None)
Quarter: 2012Q1

REPORT INFORMATION
  Report Type: 
  Country: None (occurrence: None)
  Receive Date: 20120207
  Receipt Date: 20120131
  Transmission Date: 20120608
  Serious: Yes (Hospitalization, Other)
  Sender: FDA-Public Use
  Company Number: US-ELI_LILLY_AND_COMPANY-US201202001055

PATIENT
  Sex: Female

DRUGS (3)
  1. HUMALOG [Suspect]
     Indication: DIABETES MELLITUS
     Dosage: UNK, PRN
     Dates: start: 20110101, end: 20111230
  2. HUMULIN R [Suspect]
     Indication: DIABETES MELLITUS
     Dosage: UNK, PRN
     Dates: start: 20111230
  3. HUMULIN R [Suspect]
     Dosage: 22 U, UNK
     Dates: start: 20111230

REACTIONS (3)
  - INSULIN RESISTANCE [None]
  - UPPER LIMB FRACTURE [None]
  - INCORRECT DOSE ADMINISTERED [None]
